FAERS Safety Report 7949764-0 (Version None)
Quarter: 2011Q4

REPORT INFORMATION
  Report Type: 
  Country: None (occurrence: None)
  Receive Date: 20111130
  Receipt Date: 20111122
  Transmission Date: 20120403
  Serious: Yes (Other)
  Sender: FDA-Public Use
  Company Number: PHHY2011US29342

PATIENT
  Sex: Male

DRUGS (1)
  1. GILENYA [Suspect]
     Indication: MULTIPLE SCLEROSIS
     Dosage: 0.5 MG, QD
     Route: 048
     Dates: start: 20110406, end: 20110811

REACTIONS (5)
  - PARTIAL SEIZURES [None]
  - OCULAR DISCOMFORT [None]
  - SPINAL OSTEOARTHRITIS [None]
  - FATIGUE [None]
  - CYSTOID MACULAR OEDEMA [None]
